FAERS Safety Report 10899479 (Version 1)
Quarter: 2015Q1

REPORT INFORMATION
  Report Type: Spontaneous
  Country: JP (occurrence: JP)
  Receive Date: 20150309
  Receipt Date: 20150309
  Transmission Date: 20150721
  Serious: Yes (Other)
  Sender: FDA-Public Use
  Company Number: JP-ABBVIE-15P-087-1357473-00

PATIENT
  Age: 67 Year
  Sex: Male
  Weight: 49 kg

DRUGS (14)
  1. PHENYLEPHRINE HYDROCHLORIDE. [Concomitant]
     Active Substance: PHENYLEPHRINE HYDROCHLORIDE
     Indication: PRODUCT USED FOR UNKNOWN INDICATION
     Dosage: 0.05 MG 12 TIMES/DAY AND 0.1 MG 10 TIMES/DAY
     Route: 042
     Dates: start: 20140423, end: 20140423
  2. DEXAMETHASONE SODIUM PHOSPHATE. [Concomitant]
     Active Substance: DEXAMETHASONE SODIUM PHOSPHATE
     Indication: PROPHYLAXIS
     Route: 042
     Dates: start: 20140423, end: 20140423
  3. ULTANE [Suspect]
     Active Substance: SEVOFLURANE
     Route: 055
     Dates: start: 20140424, end: 20140424
  4. PROPOFOL. [Concomitant]
     Active Substance: PROPOFOL
     Indication: ANAESTHESIA
     Dosage: 70 MG, TOTAL FLOW: 5 L/MIN
     Route: 042
     Dates: start: 20140423
  5. REMIFENTANIL HYDROCHLORIDE [Concomitant]
     Active Substance: REMIFENTANIL HYDROCHLORIDE
     Indication: MAINTENANCE OF ANAESTHESIA
     Dosage: 0.03 TO 0.4 MCG/KG/MIN (7.3 MG IN TOTAL)
     Route: 042
     Dates: start: 20140423, end: 20140423
  6. CEFAZOLIN SODIUM. [Concomitant]
     Active Substance: CEFAZOLIN SODIUM
     Indication: INFECTION PROPHYLAXIS
     Route: 042
     Dates: start: 20140423, end: 20140423
  7. ROCURONIUM BROMIDE. [Concomitant]
     Active Substance: ROCURONIUM BROMIDE
     Indication: MAINTENANCE OF ANAESTHESIA
  8. DEXAMETHASONE SODIUM PHOSPHATE. [Concomitant]
     Active Substance: DEXAMETHASONE SODIUM PHOSPHATE
     Indication: POST PROCEDURAL OEDEMA
  9. ULTANE [Suspect]
     Active Substance: SEVOFLURANE
     Indication: LIP AND/OR ORAL CAVITY CANCER
     Route: 055
     Dates: start: 20140423, end: 20140423
  10. REMIFENTANIL HYDROCHLORIDE [Concomitant]
     Active Substance: REMIFENTANIL HYDROCHLORIDE
     Indication: ANALGESIC THERAPY
  11. FENTANYL CITRATE. [Concomitant]
     Active Substance: FENTANYL CITRATE
     Indication: ANALGESIC THERAPY
     Route: 042
     Dates: start: 20140423, end: 20140423
  12. NICARDIPINE HYDROCHLORIDE. [Concomitant]
     Active Substance: NICARDIPINE HYDROCHLORIDE
     Indication: HYPERTENSION
     Dosage: 1 MCG/KG/MIN (1.5 MG IN TOTAL)
     Route: 042
     Dates: start: 20140423, end: 20140423
  13. NICARDIPINE HYDROCHLORIDE. [Concomitant]
     Active Substance: NICARDIPINE HYDROCHLORIDE
     Indication: PROPHYLAXIS
  14. ROCURONIUM BROMIDE. [Concomitant]
     Active Substance: ROCURONIUM BROMIDE
     Indication: ENDOTRACHEAL INTUBATION
     Dosage: 40 MG ONCE/DAY AND 10 MG 20 TIMES/DAY
     Route: 042
     Dates: start: 20140423, end: 20140423

REACTIONS (3)
  - Ventricular extrasystoles [Recovering/Resolving]
  - Post procedural complication [Unknown]
  - Delayed recovery from anaesthesia [Unknown]

NARRATIVE: CASE EVENT DATE: 20140423
